FAERS Safety Report 7207355-3 (Version None)
Quarter: 2011Q1

REPORT INFORMATION
  Report Type: 
  Country: None (occurrence: None)
  Receive Date: 20110103
  Receipt Date: 20101222
  Transmission Date: 20110831
  Serious: Yes (Hospitalization)
  Sender: FDA-Public Use
  Company Number: FR-PFIZER INC-2010177032

PATIENT
  Age: 83 Year
  Sex: Male

DRUGS (8)
  1. PERINDOPRIL ERBUMINE [Suspect]
     Indication: HYPERTENSION
     Dosage: UNK
     Route: 048
     Dates: end: 20101011
  2. LANSOPRAZOLE [Concomitant]
     Dosage: 5 MG, 1X/DAY
     Dates: end: 20100918
  3. NEXIUM [Suspect]
     Indication: ABDOMINAL PAIN UPPER
     Dosage: UNK
     Route: 048
     Dates: start: 20101007, end: 20101011
  4. EUPANTOL [Suspect]
     Indication: ABDOMINAL PAIN UPPER
     Dosage: UNK
     Route: 048
     Dates: start: 20101001, end: 20101007
  5. TAHOR [Suspect]
     Indication: HYPERCHOLESTEROLAEMIA
     Dosage: UNK
     Route: 048
     Dates: end: 20101011
  6. SOLU-MEDROL [Suspect]
     Dosage: 80 MG, 3X/DAY
     Route: 048
     Dates: start: 20101001, end: 20101011
  7. DAFALGAN [Suspect]
     Indication: PAIN
     Dosage: 500 MG 6X/DAY
     Route: 048
     Dates: start: 20100918, end: 20101012
  8. AMLOR [Concomitant]
     Dosage: 5 MG, 1X/DAY

REACTIONS (1)
  - THROMBOCYTOPENIA [None]
